FAERS Safety Report 6632379-4 (Version None)
Quarter: 2010Q1

REPORT INFORMATION
  Report Type: 
  Country: None (occurrence: None)
  Receive Date: 20100312
  Receipt Date: 20100305
  Transmission Date: 20100710
  Serious: Yes (Hospitalization)
  Sender: FDA-Public Use
  Company Number: JP-MERCK-0912USA02958

PATIENT
  Age: 20 Year
  Sex: Male
  Weight: 30 kg

DRUGS (8)
  1. PEPCID [Suspect]
     Route: 048
     Dates: end: 20091215
  2. PHENOBARBITAL TAB [Concomitant]
     Indication: PSYCHOSOMATIC DISEASE
     Route: 048
  3. CERCINE [Concomitant]
     Indication: PSYCHOSOMATIC DISEASE
     Route: 048
  4. CERCINE [Concomitant]
     Indication: SPASTIC PARALYSIS
     Route: 048
  5. MUCODYNE [Concomitant]
     Indication: PSYCHOSOMATIC DISEASE
     Route: 048
  6. LAXOBERON [Concomitant]
     Indication: PSYCHOSOMATIC DISEASE
     Route: 048
  7. ELENTAL [Concomitant]
     Indication: PSYCHOSOMATIC DISEASE
     Route: 048
  8. ENSURE [Concomitant]
     Indication: PSYCHOSOMATIC DISEASE
     Route: 048

REACTIONS (2)
  - HEPATIC FUNCTION ABNORMAL [None]
  - RHABDOMYOLYSIS [None]
